FAERS Safety Report 6357798-5 (Version None)
Quarter: 2009Q3

REPORT INFORMATION
  Report Type: 
  Country: None (occurrence: None)
  Receive Date: 20090916
  Receipt Date: 20090904
  Transmission Date: 20100115
  Serious: Yes (Death)
  Sender: FDA-Public Use
  Company Number: FR-AVENTIS-200913398FR

PATIENT

DRUGS (1)
  1. ARAVA [Suspect]
     Indication: IMMUNOSUPPRESSION
     Route: 048

REACTIONS (2)
  - DEATH [None]
  - MEDICATION ERROR [None]
